FAERS Safety Report 8342788-3 (Version None)
Quarter: 2012Q2

REPORT INFORMATION
  Report Type: 
  Country: None (occurrence: None)
  Receive Date: 20120508
  Receipt Date: 20120427
  Transmission Date: 20120825
  Serious: Yes (Other)
  Sender: FDA-Public Use
  Company Number: JP-VERTEX PHARMACEUTICALS INC.-AE-2012-005213

PATIENT
  Age: 51 Year
  Sex: Male

DRUGS (27)
  1. REBETOL [Concomitant]
     Route: 048
     Dates: start: 20120223, end: 20120314
  2. POLARAMINE [Concomitant]
     Dates: start: 20120308
  3. HYALEIN [Concomitant]
     Route: 031
     Dates: start: 20120412
  4. REBETOL [Concomitant]
     Indication: HEPATITIS C
     Route: 048
     Dates: start: 20120124, end: 20120215
  5. LIVOSTIN [Concomitant]
     Route: 031
     Dates: start: 20120412
  6. OMEPRAZOLE [Concomitant]
     Route: 048
  7. YOUCOBAL [Concomitant]
     Route: 048
  8. BIO-THREE (CLOSTRIDIUM BUTYRICUM COMBINED DRUG) [Concomitant]
     Route: 048
  9. RABEPRAZOLE SODIUM [Concomitant]
     Route: 048
  10. DEPAS [Concomitant]
     Route: 048
  11. CANDESARTAN CILEXETIL [Concomitant]
     Route: 048
     Dates: end: 20120315
  12. ADENOSINE [Concomitant]
     Route: 048
  13. ROHYPNOL [Concomitant]
     Route: 048
  14. ALLOPURINOL [Concomitant]
     Route: 048
     Dates: end: 20120308
  15. ALLOPURINOL [Concomitant]
     Route: 048
     Dates: start: 20120330
  16. NEOPHAGEN [Concomitant]
     Route: 048
  17. TELAVIC (TELAPREVIR) [Suspect]
     Indication: HEPATITIS C
     Route: 048
     Dates: start: 20120124, end: 20120328
  18. REBETOL [Concomitant]
     Route: 048
     Dates: start: 20120315
  19. HALCION [Concomitant]
     Route: 048
  20. CALBLOCK [Concomitant]
     Route: 048
  21. TELAVIC (TELAPREVIR) [Suspect]
     Route: 048
     Dates: start: 20120329, end: 20120405
  22. REBETOL [Concomitant]
     Route: 048
     Dates: start: 20120216, end: 20120222
  23. PEG-INTRON [Concomitant]
     Indication: HEPATITIS C
     Route: 058
     Dates: start: 20120124, end: 20120412
  24. PEG-INTRON [Concomitant]
     Route: 058
     Dates: start: 20120413
  25. URSO 250 [Concomitant]
     Indication: HEPATITIS C
     Route: 048
     Dates: start: 20101005, end: 20120307
  26. FLOMOX [Concomitant]
     Route: 048
     Dates: start: 20120404, end: 20120408
  27. LENDORMIN [Concomitant]
     Route: 048

REACTIONS (1)
  - RASH [None]
